FAERS Safety Report 21883313 (Version 1)
Quarter: 2023Q1

REPORT INFORMATION
  Report Type: Spontaneous
  Country: US (occurrence: None)
  Receive Date: 20230118
  Receipt Date: 20230118
  Transmission Date: 20230417
  Serious: Yes (Hospitalization)
  Sender: FDA-Public Use
  Company Number: None

PATIENT
  Sex: Female
  Weight: 111.9 kg

DRUGS (4)
  1. DEXAMETHASONE [Suspect]
     Active Substance: DEXAMETHASONE
     Dates: end: 20230109
  2. MERCAPTOPURINE [Suspect]
     Active Substance: MERCAPTOPURINE
     Dates: end: 20230110
  3. METHOTREXATE [Suspect]
     Active Substance: METHOTREXATE
     Dates: end: 20221212
  4. VINCRISTINE SULFATE [Suspect]
     Active Substance: VINCRISTINE SULFATE
     Dates: end: 20230105

REACTIONS (9)
  - Osteomyelitis [None]
  - Cellulitis [None]
  - Pancytopenia [None]
  - Back pain [None]
  - C-reactive protein increased [None]
  - Drug hypersensitivity [None]
  - Therapy interrupted [None]
  - Pain in extremity [None]
  - Tenderness [None]

NARRATIVE: CASE EVENT DATE: 20230111
